FAERS Safety Report 13885613 (Version 2)
Quarter: 2017Q3

REPORT INFORMATION
  Report Type: Report from Study
  Country: US (occurrence: US)
  Receive Date: 20170821
  Receipt Date: 20170901
  Transmission Date: 20171127
  Serious: Yes (Hospitalization)
  Sender: FDA-Public Use
  Company Number: US-VERTEX PHARMACEUTICALS-2017-003773

PATIENT
  Age: 18 Year
  Sex: Female

DRUGS (21)
  1. XOPENEX [Concomitant]
     Active Substance: LEVALBUTEROL HYDROCHLORIDE
     Dosage: 1.25 MG, BID
     Route: 055
  2. AQUADEKS [Concomitant]
     Active Substance: MINERALS\VITAMINS
     Dosage: 2 DF, QD
     Route: 048
  3. LANSOPRAZOLE. [Concomitant]
     Active Substance: LANSOPRAZOLE
     Dosage: 30 MG, BID
     Route: 048
  4. LISINOPRIL. [Concomitant]
     Active Substance: LISINOPRIL
     Dosage: 5 MG, QD
     Route: 048
  5. LACTULOSE. [Concomitant]
     Active Substance: LACTULOSE
     Dosage: 15 ML, QD
     Route: 048
  6. LACTULOSE. [Concomitant]
     Active Substance: LACTULOSE
     Dosage: 15 ML, QD
     Route: 054
  7. PIPERACILLIN AND TAZOBACTAM [Concomitant]
     Active Substance: PIPERACILLIN SODIUM\TAZOBACTAM SODIUM
     Dosage: 100 ML, TID
     Route: 042
  8. ORKAMBI [Suspect]
     Active Substance: IVACAFTOR\LUMACAFTOR
     Indication: CYSTIC FIBROSIS
     Dosage: 400/250 MG, BID
     Route: 048
     Dates: start: 201510
  9. VITAMIN D3 [Concomitant]
     Active Substance: CHOLECALCIFEROL
     Dosage: 5000 IU, QD
  10. AVIBACTAM W/CEFTAZIDIME [Concomitant]
     Dosage: 2.5 G, TID
     Route: 042
  11. FLOVENT [Concomitant]
     Active Substance: FLUTICASONE PROPIONATE
     Dosage: 110 MCG (4 PUFFS, BID)
  12. LEVALBUTEROL. [Concomitant]
     Active Substance: LEVALBUTEROL
     Dosage: 1.25 MG, BID
     Route: 055
  13. BECLOMETHASONE [Concomitant]
     Active Substance: BECLOMETHASONE
     Dosage: 2 PUFFS, BID
     Route: 055
  14. PULMOZYME [Concomitant]
     Active Substance: DORNASE ALFA
     Dosage: 2.5 MG, BID
     Route: 055
  15. URSODIOL. [Concomitant]
     Active Substance: URSODIOL
     Dosage: 300 MG, BID
     Route: 048
  16. LANTUS [Concomitant]
     Active Substance: INSULIN GLARGINE
     Dosage: UNK
  17. SODIUM CHLORIDE. [Concomitant]
     Active Substance: SODIUM CHLORIDE
     Dosage: UNK
  18. CREON [Concomitant]
     Active Substance: PANCRELIPASE AMYLASE\PANCRELIPASE LIPASE\PANCRELIPASE PROTEASE
     Dosage: 3 CAPS WITH MEALS AND 2 CAPS WITH SNACKS
     Route: 048
  19. HUMALOG [Concomitant]
     Active Substance: INSULIN LISPRO
     Dosage: UNK
  20. HYPERSAL [Concomitant]
     Dosage: 4 ML, BID
  21. LACTOBACILLUS ACIDOPHILUS [Concomitant]
     Active Substance: LACTOBACILLUS ACIDOPHILUS
     Dosage: 2 DF, QD
     Route: 048

REACTIONS (2)
  - Clostridium difficile infection [Unknown]
  - Infective pulmonary exacerbation of cystic fibrosis [Unknown]

NARRATIVE: CASE EVENT DATE: 20170325
